FAERS Safety Report 9319663 (Version 1)
Quarter: 2013Q2

REPORT INFORMATION
  Report Type: Spontaneous
  Country: US (occurrence: None)
  Receive Date: 20130529
  Receipt Date: 20130529
  Transmission Date: 20140414
  Serious: Yes (Life-Threatening, Hospitalization)
  Sender: FDA-Public Use
  Company Number: None

PATIENT
  Age: 73 Year
  Sex: Male
  Weight: 94.35 kg

DRUGS (9)
  1. LISINOPRIL [Suspect]
     Indication: HYPERTENSION
     Route: 048
     Dates: start: 2008, end: 20130410
  2. XELODA [Suspect]
     Indication: COLON CANCER METASTATIC
     Dosage: EVERY 21 DAYS
     Route: 048
     Dates: start: 20130226, end: 20130409
  3. ASPIRIN [Concomitant]
  4. FERROUS SULFATE [Concomitant]
  5. FISH OIL [Concomitant]
  6. LIPITOR [Concomitant]
  7. PLAVIX [Concomitant]
  8. VITAMIN B6 [Concomitant]
  9. BISOPROLOL [Concomitant]

REACTIONS (4)
  - Angioedema [None]
  - Hypertensive crisis [None]
  - Subarachnoid haemorrhage [None]
  - Convulsion [None]
